FAERS Safety Report 6109587-4 (Version None)
Quarter: 2009Q1

REPORT INFORMATION
  Report Type: 
  Country: None (occurrence: None)
  Receive Date: 20090310
  Receipt Date: 20090226
  Transmission Date: 20090719
  Serious: Yes (Hospitalization, Other)
  Sender: FDA-Public Use
  Company Number: PHHY2009CA01522

PATIENT
  Sex: Male

DRUGS (6)
  1. CLOZARIL [Suspect]
     Indication: SCHIZOAFFECTIVE DISORDER
     Dosage: 175 MG
     Route: 048
     Dates: start: 19990101, end: 20090108
  2. CLOZARIL [Suspect]
     Indication: SCHIZOPHRENIA
  3. EPIVAL [Suspect]
  4. GABAPENTIN [Concomitant]
     Dosage: 400 MG, TID
     Dates: start: 19990101
  5. DIVALPROEX SODIUM [Concomitant]
     Dosage: 500 MG, TID
     Dates: start: 19990101
  6. ZIPRASIDONE HCL [Concomitant]
     Dosage: 20 MG, BID

REACTIONS (10)
  - AGRANULOCYTOSIS [None]
  - BONE MARROW FAILURE [None]
  - BRAIN INJURY [None]
  - CELLULITIS [None]
  - CONVULSION [None]
  - NEUTROPENIA [None]
  - NEUTROPHIL COUNT DECREASED [None]
  - PLATELET COUNT DECREASED [None]
  - PNEUMONIA [None]
  - WHITE BLOOD CELL COUNT DECREASED [None]
